FAERS Safety Report 5780749-9 (Version None)
Quarter: 2008Q2

REPORT INFORMATION
  Report Type: 
  Country: None (occurrence: None)
  Receive Date: 20080620
  Receipt Date: 20080529
  Transmission Date: 20081010
  Serious: No
  Sender: FDA-Public Use
  Company Number: US-BAYER-200824735NA

PATIENT
  Sex: Female
  Weight: 50 kg

DRUGS (1)
  1. YAZ [Suspect]
     Indication: PREMENSTRUAL SYNDROME
     Route: 048
     Dates: start: 20070501

REACTIONS (4)
  - CONSTIPATION [None]
  - DIARRHOEA [None]
  - IRRITABLE BOWEL SYNDROME [None]
  - NERVOUSNESS [None]
